FAERS Safety Report 13753131 (Version 1)
Quarter: 2017Q3

REPORT INFORMATION
  Report Type: Spontaneous
  Country: US (occurrence: US)
  Receive Date: 20170713
  Receipt Date: 20170713
  Transmission Date: 20171127
  Serious: Yes (Hospitalization)
  Sender: FDA-Public Use
  Company Number: None

PATIENT
  Age: 82 Year
  Sex: Female

DRUGS (4)
  1. NIFEDIPINE. [Concomitant]
     Active Substance: NIFEDIPINE
  2. SIMVASTATIN. [Concomitant]
     Active Substance: SIMVASTATIN
  3. EPOGEN [Suspect]
     Active Substance: ERYTHROPOIETIN
     Indication: MYELOFIBROSIS
     Route: 058
     Dates: start: 20170522
  4. LOSARTAN. [Concomitant]
     Active Substance: LOSARTAN

REACTIONS (2)
  - Oxygen saturation decreased [None]
  - Drug dose omission [None]

NARRATIVE: CASE EVENT DATE: 20170706
